FAERS Safety Report 18602403 (Version 1)
Quarter: 2020Q4

REPORT INFORMATION
  Report Type: Report from Study
  Country: None (occurrence: CO)
  Receive Date: 20201211
  Receipt Date: 20201211
  Transmission Date: 20210114
  Serious: Yes (Other)
  Sender: FDA-Public Use
  Company Number: CO-ABBVIE-20K-036-3369965-00

PATIENT
  Age: 32 Year
  Sex: Female
  Weight: 70 kg

DRUGS (1)
  1. HUMIRA [Suspect]
     Active Substance: ADALIMUMAB
     Indication: HIDRADENITIS
     Route: 058
     Dates: start: 20180326, end: 20200313

REACTIONS (5)
  - Maternal exposure during pregnancy [Unknown]
  - Menstruation irregular [Unknown]
  - Caesarean section [Recovering/Resolving]
  - Live birth [Unknown]
  - Pelvic pain [Recovering/Resolving]

NARRATIVE: CASE EVENT DATE: 202003
